FAERS Safety Report 21651721 (Version 1)
Quarter: 2022Q4

REPORT INFORMATION
  Report Type: Report from Study
  Country: US (occurrence: US)
  Receive Date: 20221128
  Receipt Date: 20221128
  Transmission Date: 20230113
  Serious: No
  Sender: FDA-Public Use
  Company Number: US-ABBVIE-4181839

PATIENT
  Sex: Female

DRUGS (1)
  1. ORILISSA [Suspect]
     Active Substance: ELAGOLIX SODIUM
     Indication: Endometriosis
     Dates: start: 20221023

REACTIONS (3)
  - Hot flush [Not Recovered/Not Resolved]
  - Endometriosis [Not Recovered/Not Resolved]
  - Migraine [Not Recovered/Not Resolved]
